FAERS Safety Report 22649682 (Version 1)
Quarter: 2023Q2

REPORT INFORMATION
  Report Type: Spontaneous
  Country: US (occurrence: US)
  Receive Date: 20230628
  Receipt Date: 20230628
  Transmission Date: 20230721
  Serious: Yes (Other)
  Sender: FDA-Public Use
  Company Number: US-SA-SAC20230627000775

PATIENT
  Age: 5 Year
  Sex: Male

DRUGS (5)
  1. ELOCTATE [Suspect]
     Active Substance: EFMOROCTOCOG ALFA
     Indication: Intermenstrual bleeding
     Dosage: 1-2 DOSES  PRN (ON-DEMAND FASHION FOR BREAK THROUGH BLEEDING)
     Route: 040
     Dates: start: 2022
  2. ELOCTATE [Suspect]
     Active Substance: EFMOROCTOCOG ALFA
     Indication: Intermenstrual bleeding
     Dosage: 1-2 DOSES  PRN (ON-DEMAND FASHION FOR BREAK THROUGH BLEEDING)
     Route: 040
     Dates: start: 2022
  3. ELOCTATE [Suspect]
     Active Substance: EFMOROCTOCOG ALFA
     Indication: Factor VIII deficiency
  4. ELOCTATE [Suspect]
     Active Substance: EFMOROCTOCOG ALFA
     Indication: Factor VIII deficiency
  5. EMICIZUMAB [Concomitant]
     Active Substance: EMICIZUMAB
     Indication: Prophylaxis
     Dosage: UNK

REACTIONS (1)
  - Anti factor VIII antibody increased [Not Recovered/Not Resolved]
